FAERS Safety Report 14791072 (Version 1)
Quarter: 2018Q2

REPORT INFORMATION
  Report Type: Spontaneous
  Country: DE (occurrence: DE)
  Receive Date: 20180423
  Receipt Date: 20180423
  Transmission Date: 20180711
  Serious: Yes (Hospitalization)
  Sender: FDA-Public Use
  Company Number: DE-BAYER-2018-075761

PATIENT
  Age: 77 Year
  Sex: Male

DRUGS (10)
  1. EZETIMIBE. [Concomitant]
     Active Substance: EZETIMIBE
     Dosage: 1 DF (10/40 MG), QD
  2. TELMISARTAN. [Concomitant]
     Active Substance: TELMISARTAN
     Dosage: 40/12.5 MG, OM
  3. ALLOPURINOL. [Concomitant]
     Active Substance: ALLOPURINOL
     Dosage: 150 MG, OM
  4. BERODUAL N [Concomitant]
     Active Substance: FENOTEROL HYDROBROMIDE\IPRATROPIUM BROMIDE
     Dosage: UNK, PRN
  5. VIANI [Concomitant]
     Active Substance: FLUTICASONE PROPIONATE\SALMETEROL XINAFOATE
     Dosage: 50/500 ?G
     Route: 055
  6. ACLIDINIUM BROMIDE. [Concomitant]
     Active Substance: ACLIDINIUM BROMIDE
     Dosage: 322 ?G, BID
  7. CARVEDILOL. [Concomitant]
     Active Substance: CARVEDILOL
     Dosage: 12.5 MG, BID
  8. ATORVASTATIN CALCIUM. [Concomitant]
     Active Substance: ATORVASTATIN CALCIUM
     Dosage: 1 DF (10/40 MG), QD
  9. ASPIRIN PROTECT 100 MG [Suspect]
     Active Substance: ASPIRIN
     Dosage: 100 MG, OM
  10. TORASEMID [Concomitant]
     Active Substance: TORSEMIDE
     Dosage: 5 MG, OM

REACTIONS (1)
  - Anaemia [Unknown]

NARRATIVE: CASE EVENT DATE: 20160919
